FAERS Safety Report 5327099-2 (Version None)
Quarter: 2007Q2

REPORT INFORMATION
  Report Type: 
  Country: None (occurrence: None)
  Receive Date: 20070514
  Receipt Date: 20070502
  Transmission Date: 20071010
  Serious: Yes (Hospitalization)
  Sender: FDA-Public Use
  Company Number: 2007BI009453

PATIENT
  Age: 41 Year
  Sex: Female
  Weight: 118.8424 kg

DRUGS (9)
  1. AVONEX [Suspect]
     Indication: MULTIPLE SCLEROSIS
     Dosage: 30 UG;QW;IM
     Route: 030
     Dates: start: 20050701
  2. NEURONTIN [Concomitant]
  3. PRINIVIL [Concomitant]
  4. PLAVIX [Concomitant]
  5. PAXIL [Concomitant]
  6. PAMELOR [Concomitant]
  7. LIORESAL [Concomitant]
  8. REQUIP [Concomitant]
  9. ZANTAC [Concomitant]

REACTIONS (6)
  - GAIT DISTURBANCE [None]
  - HEPATIC ENZYME INCREASED [None]
  - MUSCLE SPASMS [None]
  - OBESITY [None]
  - PAIN [None]
  - RASH ERYTHEMATOUS [None]
